FAERS Safety Report 4572183-4 (Version None)
Quarter: 2005Q1

REPORT INFORMATION
  Report Type: 
  Country: None (occurrence: None)
  Receive Date: 20050202
  Receipt Date: 20050114
  Transmission Date: 20050727
  Serious: Yes (Life-Threatening)
  Sender: FDA-Public Use
  Company Number: 05P-144-0286842-00

PATIENT
  Age: 88 Year
  Sex: Female

DRUGS (2)
  1. VERAPAMIL HCL [Suspect]
     Indication: CARDIOMYOPATHY
     Dosage: 240 MG(120 MG, 2 IN 1 DAY) ORAL
     Route: 048
     Dates: start: 20041126, end: 20041204
  2. HYDROCHLOROTHIAZIDE [Concomitant]

REACTIONS (2)
  - DRUG HYPERSENSITIVITY [None]
  - TOXIC SKIN ERUPTION [None]
